FAERS Safety Report 7326993-0 (Version None)
Quarter: 2011Q1

REPORT INFORMATION
  Report Type: 
  Country: None (occurrence: None)
  Receive Date: 20110302
  Receipt Date: 20110228
  Transmission Date: 20110831
  Serious: Yes (Hospitalization)
  Sender: FDA-Public Use
  Company Number: IT-PFIZER INC-2011033145

PATIENT
  Age: 93 Year
  Sex: Female

DRUGS (4)
  1. VALDORM [Suspect]
     Dosage: 30 MG, SINGLE
     Route: 048
     Dates: start: 20101005, end: 20101005
  2. LYRICA [Suspect]
     Dosage: 75 MG, SINGLE
     Route: 048
     Dates: start: 20101005, end: 20101005
  3. ARVENUM [Concomitant]
  4. STILNOX [Suspect]
     Dosage: 10 MG, SINGLE
     Route: 048
     Dates: start: 20101005, end: 20101005

REACTIONS (2)
  - MEDICATION ERROR [None]
  - SOPOR [None]
